FAERS Safety Report 17113059 (Version 2)
Quarter: 2020Q1

REPORT INFORMATION
  Report Type: Spontaneous
  Country: DZ (occurrence: DZ)
  Receive Date: 20191204
  Receipt Date: 20200103
  Transmission Date: 20200409
  Serious: Yes (Life-Threatening, Hospitalization, Other)
  Sender: FDA-Public Use
  Company Number: DZ-BAUSCH-BL-2019-063565

PATIENT
  Age: 62 Year
  Sex: Female
  Weight: 57 kg

DRUGS (4)
  1. OXALIPLATIN. [Suspect]
     Active Substance: OXALIPLATIN
     Indication: GASTROINTESTINAL NEOPLASM
     Route: 065
     Dates: start: 20191118
  2. 5FU [Suspect]
     Active Substance: FLUOROURACIL
     Indication: GASTROINTESTINAL NEOPLASM
     Route: 065
     Dates: start: 20191118
  3. FOLINIC ACID [Suspect]
     Active Substance: LEUCOVORIN
     Indication: GASTROINTESTINAL NEOPLASM
     Route: 065
     Dates: start: 20191118
  4. DOCETAXEL. [Suspect]
     Active Substance: DOCETAXEL
     Indication: GASTROINTESTINAL NEOPLASM
     Route: 065
     Dates: start: 20191118

REACTIONS (9)
  - Mucosal inflammation [Recovering/Resolving]
  - Skin toxicity [Recovering/Resolving]
  - Decreased appetite [Recovering/Resolving]
  - Dysphagia [Recovering/Resolving]
  - Vomiting [Recovering/Resolving]
  - Skin lesion [Recovering/Resolving]
  - General physical health deterioration [Recovering/Resolving]
  - Neutropenia [Recovering/Resolving]
  - Diarrhoea [Recovering/Resolving]

NARRATIVE: CASE EVENT DATE: 201911
